FAERS Safety Report 19974845 (Version 2)
Quarter: 2021Q4

REPORT INFORMATION
  Report Type: Spontaneous
  Country: US (occurrence: US)
  Receive Date: 20211020
  Receipt Date: 20211020
  Transmission Date: 20220303
  Serious: No
  Sender: FDA-Public Use
  Company Number: US-ALLERGAN-2044065US

PATIENT
  Sex: Female

DRUGS (3)
  1. LINZESS [Suspect]
     Active Substance: LINACLOTIDE
     Indication: Irritable bowel syndrome
     Dosage: TWO 72 MCG ONCE A DAY SECOND DAY
     Route: 048
     Dates: start: 2020, end: 2020
  2. LINZESS [Suspect]
     Active Substance: LINACLOTIDE
     Dosage: 72 MCG ONCE A DAY BEFORE BREAKFAST FIRST DAY
     Route: 048
     Dates: start: 2020, end: 2020
  3. LINZESS [Suspect]
     Active Substance: LINACLOTIDE
     Indication: Irritable bowel syndrome
     Dosage: 290 MCG ONCE A DAY 3RD DAY
     Route: 048
     Dates: start: 2020, end: 2020

REACTIONS (4)
  - Off label use [Unknown]
  - Constipation [Unknown]
  - Abdominal distension [Unknown]
  - Drug ineffective [Unknown]

NARRATIVE: CASE EVENT DATE: 20200101
